FAERS Safety Report 8045006-9 (Version None)
Quarter: 2012Q1

REPORT INFORMATION
  Report Type: 
  Country: None (occurrence: None)
  Receive Date: 20120113
  Receipt Date: 20120104
  Transmission Date: 20120608
  Serious: Yes (Other)
  Sender: FDA-Public Use
  Company Number: PHHY2012DE001448

PATIENT
  Age: 30 Year
  Sex: Female
  Weight: 97.959 kg

DRUGS (3)
  1. GILENYA [Suspect]
     Indication: MULTIPLE SCLEROSIS
     Dosage: 1 DF, QD
     Route: 048
     Dates: start: 20070206, end: 20080409
  2. CORTISONE ACETATE [Concomitant]
     Dosage: UNK UKN, UNK
  3. REBIF [Suspect]
     Indication: MULTIPLE SCLEROSIS
     Dosage: 1 DF,IN THREE DAYS
     Dates: start: 20041214, end: 20070116

REACTIONS (8)
  - DRUG INEFFECTIVE [None]
  - SECONDARY PROGRESSIVE MULTIPLE SCLEROSIS [None]
  - GAIT DISTURBANCE [None]
  - PARESIS [None]
  - SKIN NECROSIS [None]
  - FATIGUE [None]
  - MUSCLE SPASTICITY [None]
  - ARTHRALGIA [None]
